FAERS Safety Report 9491798 (Version 2)
Quarter: 2017Q2

REPORT INFORMATION
  Report Type: Report from Study
  Country: US (occurrence: US)
  Receive Date: 20130830
  Receipt Date: 20170623
  Transmission Date: 20170830
  Serious: Yes (Hospitalization, Other)
  Sender: FDA-Public Use
  Company Number: US-SANOFI-AVENTIS-2013SA086097

PATIENT
  Sex: Female
  Weight: 54.43 kg

DRUGS (2)
  1. AUBAGIO [Suspect]
     Active Substance: TERIFLUNOMIDE
     Route: 048
  2. MAGNESIUM [Concomitant]
     Active Substance: MAGNESIUM

REACTIONS (12)
  - Urinary tract infection [Unknown]
  - Asthma [Unknown]
  - Depression [Unknown]
  - Tremor [Recovering/Resolving]
  - Impaired gastric emptying [Unknown]
  - Autoimmune thyroiditis [Unknown]
  - Basedow^s disease [Unknown]
  - Muscular weakness [Recovering/Resolving]
  - Clostridium difficile infection [Unknown]
  - Hypothyroidism [Unknown]
  - Hypertension [Unknown]
  - Gastrointestinal disorder [Unknown]
